FAERS Safety Report 4532647-6 (Version None)
Quarter: 2004Q4

REPORT INFORMATION
  Report Type: 
  Country: None (occurrence: None)
  Receive Date: 20041221
  Receipt Date: 20041209
  Transmission Date: 20050328
  Serious: Yes (Hospitalization)
  Sender: FDA-Public Use
  Company Number: PHNR2004AU01703

PATIENT
  Age: 7 Year
  Sex: Female

DRUGS (4)
  1. ZOMETA [Suspect]
     Indication: MULTIPLE FRACTURES
     Dosage: 0.83 MG, ONCE/SINGLE
     Dates: start: 20041201
  2. TOPIRMATE [Concomitant]
  3. PENTA-VITE CHILDRENS VITAMINS [Concomitant]
  4. OSTELIN [Concomitant]

REACTIONS (5)
  - BRADYCARDIA [None]
  - CHILLS [None]
  - CYANOSIS [None]
  - OXYGEN SATURATION DECREASED [None]
  - PALLOR [None]
